FAERS Safety Report 21339435 (Version 2)
Quarter: 2023Q2

REPORT INFORMATION
  Report Type: Spontaneous
  Country: JP (occurrence: JP)
  Receive Date: 20220915
  Receipt Date: 20230405
  Transmission Date: 20230722
  Serious: Yes (Death, Other)
  Sender: FDA-Public Use
  Company Number: JP-JAZZ-2022-JP-029705

PATIENT
  Age: 39 Year
  Sex: Male
  Weight: 72 kg

DRUGS (2)
  1. DEFITELIO [Suspect]
     Active Substance: DEFIBROTIDE SODIUM
     Indication: Venoocclusive liver disease
     Dosage: 1600 MILLIGRAM/24 HOURS
     Route: 042
     Dates: start: 20220909, end: 20220911
  2. DEFITELIO [Suspect]
     Active Substance: DEFIBROTIDE SODIUM
     Dosage: 25 MICROGRAM/KILOGRAM
     Route: 042
     Dates: start: 20220909, end: 20220912

REACTIONS (2)
  - Acute myeloid leukaemia [Fatal]
  - Respiratory tract haemorrhage [Fatal]

NARRATIVE: CASE EVENT DATE: 20220911
